FAERS Safety Report 8647028 (Version 2)
Quarter: 2012Q4

REPORT INFORMATION
  Report Type: 
  Country: FR (occurrence: FR)
  Receive Date: 20120703
  Receipt Date: 20120918
  Transmission Date: 20130627
  Serious: Yes (Hospitalization, Other)
  Sender: FDA-Public Use
  Company Number: PHHY2012FR055450

PATIENT
  Age: 84 Year
  Sex: Male

DRUGS (6)
  1. PAMIDRONATE DISODIUM [Suspect]
     Indication: HYPERCALCAEMIA
     Dosage: 90ml/10ml
     Dates: start: 20120405
  2. MABTHERA [Suspect]
     Dosage: 500 mg, QW
     Route: 042
     Dates: start: 20120213
  3. MABTHERA [Suspect]
     Dosage: 500 mg, QW
     Route: 042
     Dates: start: 20120217
  4. MABTHERA [Suspect]
     Dosage: 500 mg, QW
     Route: 042
     Dates: start: 20120227
  5. MABTHERA [Suspect]
     Dosage: 500 mg, QW
     Route: 042
     Dates: start: 20120305
  6. SOLIRIS [Suspect]
     Dosage: 620 mg, QW
     Dates: start: 20120312, end: 20120327

REACTIONS (5)
  - Bronchiolitis [Unknown]
  - Pleural effusion [Unknown]
  - Interstitial lung disease [Unknown]
  - Acute respiratory distress syndrome [Recovering/Resolving]
  - Anaphylactic shock [Unknown]
